FAERS Safety Report 15042993 (Version 1)
Quarter: 2018Q2

REPORT INFORMATION
  Report Type: Spontaneous
  Country: GR (occurrence: GR)
  Receive Date: 20180621
  Receipt Date: 20180621
  Transmission Date: 20180711
  Serious: Yes (Other)
  Sender: FDA-Public Use
  Company Number: GR-MYLANLABS-2018M1041120

PATIENT
  Age: 83 Year
  Sex: Female

DRUGS (3)
  1. VANCOMYCIN HYDROCHLORIDE FOR INJECTION [Suspect]
     Active Substance: VANCOMYCIN HYDROCHLORIDE
     Indication: BACILLUS INFECTION
     Dosage: UNK
  2. CIPROFLOXACIN. [Suspect]
     Active Substance: CIPROFLOXACIN
     Indication: BACILLUS INFECTION
     Dosage: UNK
  3. CLINDAMYCIN. [Suspect]
     Active Substance: CLINDAMYCIN
     Indication: BACILLUS INFECTION
     Dosage: UNK
     Route: 042

REACTIONS (2)
  - Bacteraemia [Unknown]
  - Drug ineffective [Unknown]
